FAERS Safety Report 9881686 (Version 1)
Quarter: 2014Q1

REPORT INFORMATION
  Report Type: Spontaneous
  Country: US (occurrence: US)
  Receive Date: 20140207
  Receipt Date: 20140207
  Transmission Date: 20141002
  Serious: No
  Sender: FDA-Public Use
  Company Number: US-GILEAD-2011-0042996

PATIENT
  Sex: Male

DRUGS (3)
  1. ATRIPLA [Suspect]
     Indication: HIV INFECTION
  2. TRUVADA [Suspect]
     Indication: HIV INFECTION
  3. ISENTRESS [Concomitant]
     Indication: HIV INFECTION

REACTIONS (5)
  - Medication error [Unknown]
  - Accidental overdose [Unknown]
  - Abnormal dreams [Unknown]
  - Nausea [Unknown]
  - Dizziness [Unknown]
